FAERS Safety Report 5866656-1 (Version None)
Quarter: 2008Q3

REPORT INFORMATION
  Report Type: 
  Country: None (occurrence: None)
  Receive Date: 20080902
  Receipt Date: 20080826
  Transmission Date: 20090109
  Serious: Yes (Hospitalization, Other)
  Sender: FDA-Public Use
  Company Number: US-BRISTOL-MYERS SQUIBB COMPANY-14315865

PATIENT
  Age: 42 Year
  Sex: Female
  Weight: 76 kg

DRUGS (3)
  1. CARBOPLATIN [Suspect]
     Indication: CHEMOTHERAPY
     Dosage: FIRST DOSE: 02MAY08
     Route: 042
     Dates: start: 20080627, end: 20080627
  2. PACLITAXEL [Suspect]
     Indication: CHEMOTHERAPY
     Dosage: FIRST DOSE: 02MAY08
     Route: 042
     Dates: start: 20080627, end: 20080627
  3. NEULASTA [Suspect]
     Indication: CHEMOTHERAPY
     Dosage: FIRST DOSE: 17MAY08
     Route: 058
     Dates: start: 20080628, end: 20080628

REACTIONS (17)
  - ARRHYTHMIA SUPRAVENTRICULAR [None]
  - DEHYDRATION [None]
  - FATIGUE [None]
  - GASTROINTESTINAL HAEMORRHAGE [None]
  - HAEMOGLOBIN [None]
  - HYPERBILIRUBINAEMIA [None]
  - HYPOKALAEMIA [None]
  - HYPONATRAEMIA [None]
  - HYPOPHOSPHATAEMIA [None]
  - INFECTION [None]
  - NAUSEA [None]
  - NEUTROPHIL COUNT ABNORMAL [None]
  - PLATELET COUNT ABNORMAL [None]
  - SPEECH DISORDER [None]
  - SYNCOPE [None]
  - VOMITING [None]
  - WEIGHT DECREASED [None]
